FAERS Safety Report 16493700 (Version 2)
Quarter: 2019Q3

REPORT INFORMATION
  Report Type: Spontaneous
  Country: US (occurrence: US)
  Receive Date: 20190628
  Receipt Date: 20190702
  Transmission Date: 20191004
  Serious: Yes (Hospitalization)
  Sender: FDA-Public Use
  Company Number: US-PFIZER INC-2019276394

PATIENT
  Age: 68 Year
  Sex: Female
  Weight: 81.63 kg

DRUGS (2)
  1. SILDENAFIL CITRATE. [Suspect]
     Active Substance: SILDENAFIL CITRATE
     Dosage: UNK
  2. ORENITRAM [Suspect]
     Active Substance: TREPROSTINIL
     Indication: PULMONARY ARTERIAL HYPERTENSION
     Dosage: 1.0 MG, 3X/DAY (DOSE 1MG BY MOUTH EVERY 8 HOURS - ORALLY)
     Route: 048
     Dates: start: 20190304

REACTIONS (10)
  - Dyspnoea [Unknown]
  - Flank pain [Unknown]
  - Skin ulcer [Unknown]
  - Decreased appetite [Unknown]
  - Headache [Unknown]
  - Insomnia [Unknown]
  - Oedema peripheral [Unknown]
  - Pulmonary oedema [Unknown]
  - Abdominal pain upper [Unknown]
  - Back pain [Unknown]
